FAERS Safety Report 10033976 (Version 1)
Quarter: 2014Q1

REPORT INFORMATION
  Report Type: Spontaneous
  Country: US (occurrence: None)
  Receive Date: 20140324
  Receipt Date: 20140324
  Transmission Date: 20141002
  Serious: Yes (Other)
  Sender: FDA-Public Use
  Company Number: None

PATIENT
  Age: 37 Year
  Sex: Female
  Weight: 58.97 kg

DRUGS (1)
  1. BCAA SPLASH [Suspect]
     Indication: MUSCLE BUILDING THERAPY

REACTIONS (4)
  - Muscle tightness [None]
  - Chest discomfort [None]
  - Dyspnoea [None]
  - Dyspnoea [None]
